FAERS Safety Report 14758472 (Version 2)
Quarter: 2018Q2

REPORT INFORMATION
  Report Type: Spontaneous
  Country: GB (occurrence: GB)
  Receive Date: 20180413
  Receipt Date: 20180424
  Transmission Date: 20180711
  Serious: Yes (Death, Hospitalization)
  Sender: FDA-Public Use
  Company Number: GB-CELGENEUS-GBR-20180400068

PATIENT
  Age: 64 Year
  Sex: Male

DRUGS (2)
  1. REVLIMID [Suspect]
     Active Substance: LENALIDOMIDE
     Indication: PRODUCT USED FOR UNKNOWN INDICATION
     Route: 048
     Dates: start: 201702
  2. DEXAMETHASONE. [Concomitant]
     Active Substance: DEXAMETHASONE
     Indication: PRODUCT USED FOR UNKNOWN INDICATION
     Route: 065
     Dates: start: 201702

REACTIONS (8)
  - Diabetes mellitus [Fatal]
  - Plasma cell myeloma recurrent [Fatal]
  - Respiratory tract infection [Unknown]
  - Hypotension [Unknown]
  - Acute kidney injury [Unknown]
  - Prostate cancer metastatic [Fatal]
  - Circulatory collapse [Unknown]
  - Neutropenia [Unknown]
